FAERS Safety Report 9783158 (Version 1)
Quarter: 2013Q4

REPORT INFORMATION
  Report Type: Spontaneous
  Country: GB (occurrence: GB)
  Receive Date: 20131226
  Receipt Date: 20131226
  Transmission Date: 20140711
  Serious: Yes (Hospitalization, Other)
  Sender: FDA-Public Use
  Company Number: GB-ASTRAZENECA-2013SE92064

PATIENT
  Age: 79 Year
  Sex: Female

DRUGS (5)
  1. OMEPRAZOLE [Suspect]
     Indication: PRODUCT USED FOR UNKNOWN INDICATION
     Route: 048
     Dates: start: 20060201, end: 20061030
  2. METHOTREXATE [Suspect]
     Indication: PRODUCT USED FOR UNKNOWN INDICATION
     Route: 065
  3. LANSOPRAZOLE [Suspect]
     Indication: PRODUCT USED FOR UNKNOWN INDICATION
     Route: 065
     Dates: start: 20061031, end: 201208
  4. FOLIC ACID [Concomitant]
     Indication: VITAMIN B12 DEFICIENCY
     Dates: start: 2007
  5. MELOXICAM [Concomitant]
     Indication: PRODUCT USED FOR UNKNOWN INDICATION
     Dates: start: 200412, end: 20121010

REACTIONS (40)
  - Abdominal distension [Unknown]
  - Abnormal dreams [Unknown]
  - Amnesia [Unknown]
  - Decreased appetite [Unknown]
  - Back pain [Unknown]
  - Blood count abnormal [Unknown]
  - Breast tenderness [Unknown]
  - Cataract [Unknown]
  - Eye disorder [Unknown]
  - Fatigue [Unknown]
  - Gastritis [Unknown]
  - Gingival disorder [Unknown]
  - Head titubation [Unknown]
  - Heart rate increased [Unknown]
  - Infection [Unknown]
  - Muscle spasms [Unknown]
  - Hypergammaglobulinaemia benign monoclonal [Unknown]
  - Nail disorder [Unknown]
  - Nightmare [Unknown]
  - Osteoporosis [Unknown]
  - Pain [Unknown]
  - Pelvic pain [Unknown]
  - Postmenopausal haemorrhage [Unknown]
  - Sneezing [Unknown]
  - Oropharyngeal pain [Unknown]
  - Parosmia [Unknown]
  - Muscle strain [Unknown]
  - Bursitis [Unknown]
  - Weight decreased [Unknown]
  - Abdominal pain [Unknown]
  - Constipation [Unknown]
  - Diarrhoea [Unknown]
  - Dizziness [Unknown]
  - Hallucination [Unknown]
  - Myalgia [Unknown]
  - Muscular weakness [Unknown]
  - Nausea [Unknown]
  - Malaise [Unknown]
  - Vomiting [Unknown]
  - Therapy cessation [Unknown]
